FAERS Safety Report 8311675-9 (Version None)
Quarter: 2012Q2

REPORT INFORMATION
  Report Type: 
  Country: None (occurrence: None)
  Receive Date: 20120425
  Receipt Date: 20120417
  Transmission Date: 20120825
  Serious: Yes (Hospitalization, Other)
  Sender: FDA-Public Use
  Company Number: US-ABBOTT-12P-163-0898702-00

PATIENT
  Sex: Male
  Weight: 92.162 kg

DRUGS (8)
  1. ELAVIL [Concomitant]
     Indication: IRRITABLE BOWEL SYNDROME
  2. CIMZIA [Suspect]
     Indication: CROHN'S DISEASE
     Route: 058
     Dates: start: 20100101
  3. HUMIRA [Suspect]
     Route: 058
     Dates: end: 20090101
  4. HUMIRA [Suspect]
     Route: 058
     Dates: start: 20110401, end: 20111014
  5. HUMIRA [Suspect]
     Indication: CROHN'S DISEASE
     Dates: start: 20070101, end: 20090401
  6. ENTOCORT EC [Suspect]
     Indication: CROHN'S DISEASE
  7. APRISO [Concomitant]
     Indication: CROHN'S DISEASE
  8. MERCAPTOPURINE [Concomitant]
     Indication: CROHN'S DISEASE

REACTIONS (8)
  - CROHN'S DISEASE [None]
  - PLATELET DISORDER [None]
  - B-CELL LYMPHOMA [None]
  - NECK MASS [None]
  - THROMBOCYTOSIS [None]
  - ABDOMINAL PAIN [None]
  - LYMPHADENOPATHY [None]
  - HEPATIC ENZYME ABNORMAL [None]
